FAERS Safety Report 6663480-7 (Version None)
Quarter: 2010Q2

REPORT INFORMATION
  Report Type: 
  Country: None (occurrence: None)
  Receive Date: 20100401
  Receipt Date: 20100325
  Transmission Date: 20101027
  Serious: Yes (Other)
  Sender: FDA-Public Use
  Company Number: TR-ABBOTT-10P-161-0635620-00

PATIENT
  Age: 19 Year

DRUGS (3)
  1. BIPERIDEN HYDROCHLORIDE TAB [Suspect]
     Indication: MAJOR DEPRESSION
     Dosage: NOT REPORTED
  2. HALOPERIDOL [Suspect]
     Indication: MAJOR DEPRESSION
     Dosage: NOT REPORTED
  3. HALOPERIDOL [Suspect]
     Indication: MANIA

REACTIONS (1)
  - NEUROLEPTIC MALIGNANT SYNDROME [None]
